FAERS Safety Report 14227125 (Version 3)
Quarter: 2018Q1

REPORT INFORMATION
  Report Type: Spontaneous
  Country: FR (occurrence: FR)
  Receive Date: 20171127
  Receipt Date: 20180105
  Transmission Date: 20180508
  Serious: Yes (Other)
  Sender: FDA-Public Use
  Company Number: FR-JNJFOC-20171123820

PATIENT
  Age: 23 Year
  Sex: Male

DRUGS (2)
  1. INFLIXIMAB, RECOMBINANT [Suspect]
     Active Substance: INFLIXIMAB
     Indication: CROHN^S DISEASE
     Route: 042
     Dates: start: 2007
  2. INFLIXIMAB, RECOMBINANT [Suspect]
     Active Substance: INFLIXIMAB
     Indication: CROHN^S DISEASE
     Route: 042
     Dates: end: 201005

REACTIONS (6)
  - Oesophagitis ulcerative [Recovering/Resolving]
  - Intestinal stenosis [Recovering/Resolving]
  - Product use issue [Unknown]
  - Drug effect decreased [Recovered/Resolved]
  - Off label use [Unknown]
  - Oesophageal disorder [Recovering/Resolving]
